FAERS Safety Report 24704108 (Version 1)
Quarter: 2024Q4

REPORT INFORMATION
  Report Type: Spontaneous
  Country: US (occurrence: US)
  Receive Date: 20241206
  Receipt Date: 20241206
  Transmission Date: 20250115
  Serious: Yes (Hospitalization, Other)
  Sender: MICRO LABS
  Company Number: US-862174955-ML2024-06342

PATIENT
  Age: 62 Year
  Sex: Female

DRUGS (1)
  1. APIXABAN [Suspect]
     Active Substance: APIXABAN
     Indication: Atrial fibrillation
     Dosage: SHE REPORTED THE INITIATION OF APIXABAN 1 MONTH PRIOR TO ADMISSION.

REACTIONS (1)
  - Tubulointerstitial nephritis [Recovering/Resolving]
